FAERS Safety Report 16451920 (Version 2)
Quarter: 2019Q3

REPORT INFORMATION
  Report Type: Spontaneous
  Country: US (occurrence: US)
  Receive Date: 20190619
  Receipt Date: 20190701
  Transmission Date: 20191004
  Serious: No
  Sender: FDA-Public Use
  Company Number: US-AMGEN-USASP2019094847

PATIENT
  Age: 40 Year
  Sex: Male
  Weight: 103.4 kg

DRUGS (1)
  1. BLINCYTO [Suspect]
     Active Substance: BLINATUMOMAB
     Indication: PRODUCT USED FOR UNKNOWN INDICATION
     Dosage: 196 MICROGRAM
     Route: 065
     Dates: end: 20190606

REACTIONS (2)
  - Product dose omission [Unknown]
  - Product administration interrupted [Unknown]

NARRATIVE: CASE EVENT DATE: 20190523
